FAERS Safety Report 22147787 (Version 1)
Quarter: 2023Q1

REPORT INFORMATION
  Report Type: Spontaneous
  Country: AR (occurrence: AR)
  Receive Date: 20230328
  Receipt Date: 20230328
  Transmission Date: 20230417
  Serious: Yes (Other)
  Sender: FDA-Public Use
  Company Number: AR-TAKEDA-2023TUS030911

PATIENT
  Age: 53 Year
  Sex: Male

DRUGS (1)
  1. ALUNBRIG [Suspect]
     Active Substance: BRIGATINIB
     Indication: Lung neoplasm malignant
     Dosage: 180 MILLIGRAM
     Route: 065

REACTIONS (3)
  - Lung neoplasm malignant [Unknown]
  - Haemorrhage [Unknown]
  - Product dose omission issue [Unknown]
